FAERS Safety Report 20795572 (Version 1)
Quarter: 2022Q2

REPORT INFORMATION
  Report Type: Spontaneous
  Country: IN (occurrence: IN)
  Receive Date: 20220506
  Receipt Date: 20220506
  Transmission Date: 20220721
  Serious: Yes (Other)
  Sender: FDA-Public Use
  Company Number: IN-GLENMARK PHARMACEUTICALS-2022GMK072087

PATIENT

DRUGS (1)
  1. AXITINIB [Suspect]
     Active Substance: AXITINIB
     Indication: Neoplasm malignant
     Dosage: 1 DOSAGE FORM, QD (1 TAB PER DAY)
     Route: 048

REACTIONS (2)
  - Prostate cancer [Unknown]
  - Diarrhoea [Unknown]
